FAERS Safety Report 23453015 (Version 1)
Quarter: 2024Q1

REPORT INFORMATION
  Report Type: Spontaneous
  Country: FR (occurrence: FR)
  Receive Date: 20240129
  Receipt Date: 20240129
  Transmission Date: 20240410
  Serious: Yes (Other)
  Sender: FDA-Public Use
  Company Number: FR-INSUD PHARMA-2401FR00435

PATIENT

DRUGS (10)
  1. FOSFOMYCIN [Suspect]
     Active Substance: FOSFOMYCIN
     Indication: Enterobacter infection
     Dosage: 4 GRAM, QID (25-JAN TO 31-JAN)
     Route: 051
  2. FOSFOMYCIN [Suspect]
     Active Substance: FOSFOMYCIN
     Dosage: 4 GRAM, TID (08-JAN ONLY)
     Route: 051
  3. FOSFOMYCIN [Suspect]
     Active Substance: FOSFOMYCIN
     Dosage: 4 GRAM, Q 12 HOURS (02-JAN TO 07-JAN)
     Route: 051
  4. FOSFOMYCIN [Suspect]
     Active Substance: FOSFOMYCIN
     Dosage: 4 GRAM, QID (29-DEC TO 01-JAN)
     Route: 051
  5. MEROPENEM [Concomitant]
     Active Substance: MEROPENEM
     Indication: Enterobacter infection
     Dosage: 2 GRAM, SINGLE (25-JAN)
  6. MEROPENEM [Concomitant]
     Active Substance: MEROPENEM
     Dosage: 4-6 G/DAY (26-NOV TO 05-JAN)
  7. FERROUS SULFATE [Concomitant]
     Active Substance: FERROUS SULFATE
     Route: 048
  8. PANTOPRAZOLE [Concomitant]
     Active Substance: PANTOPRAZOLE
  9. SODIUM FEREDETATE [Concomitant]
     Active Substance: SODIUM FEREDETATE
  10. LANSOPRAZOLE [Concomitant]
     Active Substance: LANSOPRAZOLE

REACTIONS (3)
  - Agranulocytosis [Recovered/Resolved]
  - Neutropenia [Recovered/Resolved]
  - Lymphopenia [Recovered/Resolved]
